FAERS Safety Report 11544309 (Version 1)
Quarter: 2015Q3

REPORT INFORMATION
  Report Type: Spontaneous
  Country: US (occurrence: None)
  Receive Date: 20150923
  Receipt Date: 20150923
  Transmission Date: 20151125
  Serious: Yes (Disabling, Other)
  Sender: FDA-Public Use
  Company Number: None

PATIENT
  Age: 80 Year
  Sex: Female
  Weight: 83.92 kg

DRUGS (27)
  1. VITAMIN ^D^ [Concomitant]
  2. ALLEGRA [Concomitant]
     Active Substance: FEXOFENADINE HYDROCHLORIDE
  3. AZITHROMYCIN [Concomitant]
     Active Substance: AZITHROMYCIN ANHYDROUS
  4. DAPSONE. [Concomitant]
     Active Substance: DAPSONE
  5. VOLTAREN [Concomitant]
     Active Substance: DICLOFENAC SODIUM
  6. TRAVATAM [Concomitant]
  7. NORVASC [Concomitant]
     Active Substance: AMLODIPINE BESYLATE
  8. METFORMIN HCL (SUGAR) [Concomitant]
  9. SIMBRINZA [Suspect]
     Active Substance: BRIMONIDINE TARTRATE\BRINZOLAMIDE
     Indication: GLAUCOMA
     Route: 047
     Dates: start: 20140502, end: 20150708
  10. PROBENECID. [Concomitant]
     Active Substance: PROBENECID
  11. IRON PILL [Concomitant]
     Active Substance: IRON
  12. LEVOTHYROXINE. [Concomitant]
     Active Substance: LEVOTHYROXINE
  13. CALTRATE+ VITAMIN D3 [Concomitant]
  14. GEMFRIBROZIL [Concomitant]
  15. NEO/POLYMYX/DEX [Concomitant]
  16. ATENOLOL. [Concomitant]
     Active Substance: ATENOLOL
  17. OMEPRAZOLE. [Concomitant]
     Active Substance: OMEPRAZOLE
  18. FUROSEMIDE. [Concomitant]
     Active Substance: FUROSEMIDE
  19. BABY ASPIRIN [Concomitant]
     Active Substance: ASPIRIN
  20. TYLENOL (CODIENE) [Concomitant]
  21. NOSE STRIPS [Concomitant]
  22. CLONAZEPAM. [Concomitant]
     Active Substance: CLONAZEPAM
  23. TOBRAMYEIN [Concomitant]
  24. MULTI. VITAMIN [Concomitant]
  25. RANITIDINE [Concomitant]
     Active Substance: RANITIDINE\RANITIDINE HYDROCHLORIDE
  26. COENZYME Q10 [Concomitant]
     Active Substance: UBIDECARENONE
  27. MUCINEX [Concomitant]
     Active Substance: GUAIFENESIN

REACTIONS (8)
  - Eye pain [None]
  - Eye pruritus [None]
  - Rash [None]
  - Lacrimation increased [None]
  - Visual acuity reduced [None]
  - Eye swelling [None]
  - Eye discharge [None]
  - Conjunctivitis [None]

NARRATIVE: CASE EVENT DATE: 20140404
